FAERS Safety Report 24749096 (Version 5)
Quarter: 2025Q2

REPORT INFORMATION
  Report Type: Spontaneous
  Country: JP (occurrence: JP)
  Receive Date: 20241218
  Receipt Date: 20250408
  Transmission Date: 20250716
  Serious: Yes (Life-Threatening, Hospitalization, Other)
  Sender: ALEXION PHARMACEUTICALS
  Company Number: JP-ASTRAZENECA-240140279_010520_P_1

PATIENT
  Age: 67 Year
  Weight: 62 kg

DRUGS (6)
  1. FULVESTRANT [Suspect]
     Active Substance: FULVESTRANT
     Indication: Breast cancer female
     Dosage: 500 MILLIGRAM, QD
  2. FULVESTRANT [Suspect]
     Active Substance: FULVESTRANT
  3. VERZENIO [Suspect]
     Active Substance: ABEMACICLIB
     Indication: Breast cancer female
  4. VERZENIO [Suspect]
     Active Substance: ABEMACICLIB
     Dosage: 100 MILLIGRAM, BID
  5. LETROZOLE [Concomitant]
     Active Substance: LETROZOLE
     Indication: Breast cancer female
     Route: 065
  6. DENOSUMAB [Concomitant]
     Active Substance: DENOSUMAB
     Indication: Metastases to bone
     Dosage: 120 MILLIGRAM, Q4W

REACTIONS (3)
  - Pulmonary embolism [Recovering/Resolving]
  - Neutrophil count decreased [Recovered/Resolved]
  - Eastern Cooperative Oncology Group performance status worsened [Unknown]
